FAERS Safety Report 8485242-0 (Version None)
Quarter: 2012Q3

REPORT INFORMATION
  Report Type: 
  Country: None (occurrence: None)
  Receive Date: 20120703
  Receipt Date: 20120626
  Transmission Date: 20120928
  Serious: No
  Sender: FDA-Public Use
  Company Number: US-BAYER-2012-064698

PATIENT

DRUGS (7)
  1. MOTRIN [Concomitant]
     Indication: PAIN IN EXTREMITY
  2. MUSCLE RELAXANTS [Concomitant]
     Indication: PAIN IN EXTREMITY
  3. ALEVE (CAPLET) [Suspect]
     Indication: ANALGESIC THERAPY
     Route: 048
  4. MUSCLE RELAXANTS [Concomitant]
     Indication: MUSCULOSKELETAL PAIN
  5. MOTRIN [Concomitant]
     Indication: MUSCULOSKELETAL PAIN
  6. TYLENOL (CAPLET) [Concomitant]
     Indication: PAIN IN EXTREMITY
  7. TYLENOL (CAPLET) [Concomitant]
     Indication: MUSCULOSKELETAL PAIN

REACTIONS (2)
  - MUSCULOSKELETAL PAIN [None]
  - PAIN IN EXTREMITY [None]
